FAERS Safety Report 7833881-X (Version None)
Quarter: 2011Q4

REPORT INFORMATION
  Report Type: 
  Country: None (occurrence: None)
  Receive Date: 20111020
  Receipt Date: 20111006
  Transmission Date: 20120403
  Serious: Yes (Hospitalization)
  Sender: FDA-Public Use
  Company Number: TPA2011A06681

PATIENT
  Age: 73 Year
  Sex: Male

DRUGS (2)
  1. IRBESARTAN AND HYDROCHLOROTHIAZIDE [Concomitant]
  2. ADENURIC (FEBUXOSTAT) [Suspect]
     Indication: PRODUCT USED FOR UNKNOWN INDICATION
     Dosage: ORAL
     Route: 048

REACTIONS (1)
  - HYPERTENSIVE CRISIS [None]
